FAERS Safety Report 13247846 (Version 7)
Quarter: 2017Q2

REPORT INFORMATION
  Report Type: Report from Study
  Country: US (occurrence: US)
  Receive Date: 20170217
  Receipt Date: 20170531
  Transmission Date: 20170830
  Serious: Yes (Hospitalization)
  Sender: FDA-Public Use
  Company Number: US-ACTELION-A-NJ2017-149958

PATIENT
  Age: 74 Year
  Sex: Female
  Weight: 99.77 kg

DRUGS (4)
  1. OXYGEN. [Concomitant]
     Active Substance: OXYGEN
     Dosage: 2.5 L, PER MIN
     Route: 045
  2. SILDENAFIL CITRATE. [Concomitant]
     Active Substance: SILDENAFIL CITRATE
  3. TRACLEER [Suspect]
     Active Substance: BOSENTAN
     Indication: PULMONARY ARTERIAL HYPERTENSION
     Dosage: 125 MG, BID
     Route: 048
  4. OPSUMIT [Suspect]
     Active Substance: MACITENTAN
     Indication: PULMONARY ARTERIAL HYPERTENSION
     Dosage: UNK
     Route: 048
     Dates: start: 20170127

REACTIONS (13)
  - Headache [Not Recovered/Not Resolved]
  - Paraesthesia [Unknown]
  - Pneumonia [Unknown]
  - Corneal disorder [Unknown]
  - Cough [Not Recovered/Not Resolved]
  - Oxygen saturation decreased [Unknown]
  - Arthralgia [Unknown]
  - Muscular weakness [Not Recovered/Not Resolved]
  - Wheezing [Unknown]
  - Pyrexia [Unknown]
  - Unevaluable event [Unknown]
  - Dyspnoea [Not Recovered/Not Resolved]
  - Syncope [Unknown]
